FAERS Safety Report 14740181 (Version 1)
Quarter: 2018Q2

REPORT INFORMATION
  Report Type: Spontaneous
  Country: US (occurrence: US)
  Receive Date: 20180410
  Receipt Date: 20180410
  Transmission Date: 20180711
  Serious: No
  Sender: FDA-Public Use
  Company Number: US-ALLERGAN-1765716US

PATIENT
  Age: 91 Year
  Sex: Male

DRUGS (1)
  1. TRELSTAR [Suspect]
     Active Substance: TRIPTORELIN PAMOATE
     Indication: PROSTATE CANCER
     Dosage: UNK
     Route: 051
     Dates: start: 201709, end: 201711

REACTIONS (2)
  - Discomfort [Recovered/Resolved]
  - Feeling abnormal [Recovered/Resolved]
